FAERS Safety Report 7769103-8 (Version None)
Quarter: 2011Q3

REPORT INFORMATION
  Report Type: 
  Country: None (occurrence: None)
  Receive Date: 20110922
  Receipt Date: 20110308
  Transmission Date: 20111222
  Serious: Yes (Other)
  Sender: FDA-Public Use
  Company Number: US-ASTRAZENECA-2011SE12938

PATIENT
  Age: 12 Year
  Sex: Male

DRUGS (1)
  1. SEROQUEL [Suspect]
     Dosage: TOTAL DAILY DOSAGE: 75 MILLIGRAMS, FREQUENCY: UNKNOWN.
     Route: 048

REACTIONS (1)
  - TARDIVE DYSKINESIA [None]
